FAERS Safety Report 12530524 (Version 1)
Quarter: 2016Q3

REPORT INFORMATION
  Report Type: Spontaneous
  Country: US (occurrence: US)
  Receive Date: 20160706
  Receipt Date: 20160706
  Transmission Date: 20161109
  Serious: No
  Sender: FDA-Public Use
  Company Number: US-GLAXOSMITHKLINE-US2016093617

PATIENT
  Age: 68 Year
  Sex: Female

DRUGS (2)
  1. SENSODYNE REPAIR AND PROTECT EXTRA FRESH [Suspect]
     Active Substance: STANNOUS FLUORIDE
     Indication: ENAMEL ANOMALY
     Dosage: UNK
     Dates: start: 20160620, end: 20160622
  2. SENSODYNE REPAIR AND PROTECT EXTRA FRESH [Suspect]
     Active Substance: STANNOUS FLUORIDE
     Indication: PROPHYLAXIS

REACTIONS (6)
  - Gingival disorder [Unknown]
  - Cheilitis [Unknown]
  - Hypoaesthesia oral [Recovered/Resolved]
  - Lip pain [Unknown]
  - Gingival pain [Unknown]
  - Noninfective gingivitis [Recovering/Resolving]

NARRATIVE: CASE EVENT DATE: 20160625
